FAERS Safety Report 7135596-2 (Version None)
Quarter: 2010Q4

REPORT INFORMATION
  Report Type: 
  Country: None (occurrence: None)
  Receive Date: 20101203
  Receipt Date: 20101123
  Transmission Date: 20110411
  Serious: Yes (Other)
  Sender: FDA-Public Use
  Company Number: PHHY2010NL79762

PATIENT
  Sex: Female

DRUGS (10)
  1. GLIVEC [Suspect]
     Dosage: 400 MG, 1DD
     Route: 048
     Dates: start: 20100425, end: 20100803
  2. NITROFURANTOIN [Suspect]
     Dosage: 50 MG, 4DD
     Route: 048
     Dates: start: 20100607, end: 20100614
  3. FLUCONAZOLE [Suspect]
     Dosage: 150 MG, 1DD
     Route: 048
     Dates: start: 20100610, end: 20100612
  4. HYDROXYZINE [Concomitant]
     Dosage: 1-2DD25 MG, AS NEEDED
     Dates: start: 20100615
  5. PARIET [Concomitant]
     Dosage: 1DD 20MG
  6. TRIAMCINOLONE ACETONIDE [Concomitant]
     Dosage: 1MG/G, 2DD1
     Dates: start: 20100615, end: 20100630
  7. CETOMACROGOL (S) [Concomitant]
     Dosage: 2DD1
  8. VESICARE [Concomitant]
     Dosage: 1DD 5MG
     Dates: start: 20100615, end: 20100705
  9. SYNAPAUSE E3 [Concomitant]
     Dosage: 1DD 0.5MG
     Dates: start: 20100707, end: 20100727
  10. COLECALCIFEROL [Concomitant]
     Dosage: 1DD 1ML
     Dates: start: 20100716

REACTIONS (1)
  - AUTOIMMUNE HEPATITIS [None]
